FAERS Safety Report 10119542 (Version 1)
Quarter: 2014Q2

REPORT INFORMATION
  Report Type: Spontaneous
  Country: IL (occurrence: IL)
  Receive Date: 20140425
  Receipt Date: 20140425
  Transmission Date: 20141212
  Serious: Yes (Hospitalization)
  Sender: FDA-Public Use
  Company Number: IL-PFIZER INC-2014112696

PATIENT
  Age: 52 Year
  Sex: Male

DRUGS (5)
  1. METHYLPREDNISOLONE [Suspect]
     Indication: EYE DISORDER
     Dosage: 500 MG, (WEEKLY FOR 4 WEEKS, FOLLOWED BY 250 MG/WEEK ONCE A WEEK)
     Route: 042
  2. METHYLPREDNISOLONE [Suspect]
     Dosage: 250 MG, WEEKLY
     Route: 042
  3. ATORVASTATIN [Concomitant]
     Indication: HYPERLIPIDAEMIA
  4. CIPROFIBRATE [Concomitant]
     Indication: HYPERLIPIDAEMIA
  5. LEVOTHYROXIN [Concomitant]
     Indication: HYPOTHYROIDISM

REACTIONS (2)
  - Liver injury [Recovered/Resolved]
  - Jaundice [Recovered/Resolved]
